FAERS Safety Report 12506984 (Version 2)
Quarter: 2016Q3

REPORT INFORMATION
  Report Type: Spontaneous
  Country: DE (occurrence: DE)
  Receive Date: 20160629
  Receipt Date: 20160701
  Transmission Date: 20161109
  Serious: Yes (Hospitalization, Other)
  Sender: FDA-Public Use
  Company Number: DE-AMGEN-DEUSP2016082598

PATIENT
  Sex: Female

DRUGS (19)
  1. RITUXIMAB [Concomitant]
     Active Substance: RITUXIMAB
     Indication: B-CELL LYMPHOMA
     Dosage: 750 MG, 1 TIME A DAY FOR 1 DAY
     Route: 042
     Dates: start: 20160606, end: 20160606
  2. LEVOTHYROXINE SODIUM. [Concomitant]
     Active Substance: LEVOTHYROXINE SODIUM
     Indication: HYPERTHYROIDISM
     Dosage: 100 MUG, 1 TIME A DAY
     Route: 048
     Dates: start: 20160606
  3. CYCLOPHOSPHAMIDE. [Concomitant]
     Active Substance: CYCLOPHOSPHAMIDE
     Indication: B-CELL LYMPHOMA
     Dosage: 1500 MG, 1 TIME A DAY FOR 1 DAY
     Route: 042
     Dates: start: 20160607, end: 20160607
  4. ALLOPURINOL. [Concomitant]
     Active Substance: ALLOPURINOL
     Indication: PROPHYLAXIS
     Dosage: 100 MG, 1 TIME A DAY
     Route: 048
     Dates: start: 20160607
  5. RANITIDIN [Concomitant]
     Active Substance: RANITIDINE HYDROCHLORIDE
     Indication: PREMEDICATION
     Dosage: 1 AMPULE, ONCE FOR 1 DAY
     Route: 042
     Dates: start: 20160606, end: 20160606
  6. ONDANSETRON [Concomitant]
     Active Substance: ONDANSETRON
     Indication: PROPHYLAXIS
     Dosage: 8 MG, 2 TIMES A DAY FOR 1 DAY
     Route: 060
     Dates: start: 20160607, end: 20160607
  7. METOPROLOL. [Concomitant]
     Active Substance: METOPROLOL
     Indication: ARRHYTHMIA PROPHYLAXIS
     Dosage: 100 MG, 2 TIMES A DAY
     Route: 048
     Dates: start: 20160606
  8. DIGITOXIN [Concomitant]
     Active Substance: DIGITOXIN
     Indication: ARRHYTHMIA PROPHYLAXIS
     Dosage: 1 MG, 1 TIME A DAY
     Route: 048
     Dates: start: 20160606
  9. PEGFILGRASTIM [Suspect]
     Active Substance: PEGFILGRASTIM
     Indication: B-CELL LYMPHOMA
     Dosage: 6 MG, 1 TIME A DAY FOR 1 DAY
     Route: 058
     Dates: start: 20160527, end: 20160527
  10. DOXORUBICINE [Concomitant]
     Active Substance: DOXORUBICIN
     Indication: B-CELL LYMPHOMA
     Dosage: 100 MG, 1 TIME A DAY FOR 1 DAY
     Route: 042
     Dates: start: 20160607, end: 20160607
  11. ACICLOVIR [Concomitant]
     Active Substance: ACYCLOVIR
     Indication: INFECTION PROPHYLAXIS
     Dosage: 400 MG, 1 TIME A DAY
     Route: 048
     Dates: start: 20160607
  12. SULFAMETHOXAZOLE AND TRIMETHOPRIM [Concomitant]
     Active Substance: SULFAMETHOXAZOLE\TRIMETHOPRIM
     Indication: INFECTION PROPHYLAXIS
     Dosage: 900 MG, 2 TIMES A WEEK
     Route: 048
     Dates: start: 20160606
  13. PREDNISOLONE. [Concomitant]
     Active Substance: PREDNISOLONE
     Indication: PREMEDICATION
     Dosage: 100 MG, 1 TIMES A DAY FOR 1 DAY
     Route: 042
     Dates: start: 20160606, end: 20160606
  14. VINCRISTINE [Concomitant]
     Active Substance: VINCRISTINE
     Indication: B-CELL LYMPHOMA
     Dosage: 2 MG, 1 TIME A DAY FOR 1 DAY
     Route: 042
     Dates: start: 20160607, end: 20160607
  15. PREDNISONE. [Concomitant]
     Active Substance: PREDNISONE
     Indication: B-CELL LYMPHOMA
     Dosage: 100 MG, 1 TIME A DAY
     Route: 048
     Dates: start: 20160607
  16. VITAMIN D [Concomitant]
     Active Substance: CHOLECALCIFEROL
     Indication: VITAMIN D DEFICIENCY
     Dosage: 20000 IU, 1 TIME A WEEK
     Route: 048
     Dates: start: 20160606
  17. PARACETAMOL [Concomitant]
     Active Substance: ACETAMINOPHEN
     Indication: PREMEDICATION
     Dosage: 1 G, 1 TIME A DAY FOR 1 DAY
     Route: 048
     Dates: start: 20160606, end: 20160606
  18. DIMETINDENE MALEATE [Concomitant]
     Active Substance: DIMETHINDENE MALEATE
     Indication: PREMEDICATION
     Dosage: 1 AMP, ONCE FOR 1 DAY
     Route: 042
     Dates: start: 20160606, end: 20160606
  19. TINZAPARIN [Concomitant]
     Active Substance: TINZAPARIN
     Indication: CEREBROVASCULAR ACCIDENT PROPHYLAXIS
     Dosage: 1 ML, 1 TIME A DAY
     Route: 058
     Dates: start: 20160607

REACTIONS (1)
  - Acute kidney injury [Recovered/Resolved]

NARRATIVE: CASE EVENT DATE: 20160607
